FAERS Safety Report 10369971 (Version 2)
Quarter: 2015Q3

REPORT INFORMATION
  Report Type: Spontaneous
  Country: US (occurrence: US)
  Receive Date: 20140808
  Receipt Date: 20150924
  Transmission Date: 20151125
  Serious: No
  Sender: FDA-Public Use
  Company Number: US-BIOGENIDEC-2014BI079054

PATIENT
  Age: 44 Year
  Sex: Female

DRUGS (4)
  1. AVONEX [Suspect]
     Active Substance: INTERFERON BETA-1A
     Indication: MULTIPLE SCLEROSIS
     Route: 030
     Dates: start: 19990501
  2. AVONEX [Suspect]
     Active Substance: INTERFERON BETA-1A
     Indication: MULTIPLE SCLEROSIS
     Route: 030
  3. AVONEX [Suspect]
     Active Substance: INTERFERON BETA-1A
     Indication: MULTIPLE SCLEROSIS
     Route: 030
     Dates: start: 19990401
  4. AVONEX [Suspect]
     Active Substance: INTERFERON BETA-1A
     Indication: MULTIPLE SCLEROSIS
     Route: 030
     Dates: start: 19990517

REACTIONS (3)
  - Gait disturbance [Not Recovered/Not Resolved]
  - Memory impairment [Not Recovered/Not Resolved]
  - Cognitive disorder [Not Recovered/Not Resolved]

NARRATIVE: CASE EVENT DATE: 19990517
